FAERS Safety Report 15981214 (Version 1)
Quarter: 2019Q1

REPORT INFORMATION
  Report Type: Spontaneous
  Country: US (occurrence: US)
  Receive Date: 20190219
  Receipt Date: 20190219
  Transmission Date: 20190418
  Serious: Yes (Other)
  Sender: FDA-Public Use
  Company Number: US-GLAXOSMITHKLINE-US2019025884

PATIENT
  Age: 82 Year
  Sex: Female

DRUGS (2)
  1. VENTOLIN HFA [Suspect]
     Active Substance: ALBUTEROL SULFATE
     Indication: PRODUCT USED FOR UNKNOWN INDICATION
     Dosage: UNK UNK, PRN
     Dates: start: 201808
  2. ALBUTEROL NEBULIZER [Concomitant]
     Active Substance: ALBUTEROL

REACTIONS (6)
  - Radiotherapy [Unknown]
  - Dysphonia [Recovering/Resolving]
  - Pharyngeal operation [Unknown]
  - Vocal cord nodule removal [Unknown]
  - Vocal cord thickening [Unknown]
  - Scar [Unknown]

NARRATIVE: CASE EVENT DATE: 201810
